FAERS Safety Report 8610921-1 (Version None)
Quarter: 2012Q3

REPORT INFORMATION
  Report Type: 
  Country: None (occurrence: None)
  Receive Date: 20120822
  Receipt Date: 20120815
  Transmission Date: 20120928
  Serious: Yes (Other)
  Sender: FDA-Public Use
  Company Number: US-AMGEN-USASP2012047576

PATIENT
  Sex: Female

DRUGS (2)
  1. PROCRIT [Suspect]
     Indication: ANAEMIA
     Dosage: UNK
     Dates: end: 20120701
  2. ARANESP [Concomitant]
     Indication: ANAEMIA
     Dosage: UNK

REACTIONS (2)
  - SQUAMOUS CELL CARCINOMA [None]
  - ANAEMIA [None]
